FAERS Safety Report 20825984 (Version 1)
Quarter: 2022Q2

REPORT INFORMATION
  Report Type: Other
  Country: GB (occurrence: GB)
  Receive Date: 20220513
  Receipt Date: 20220513
  Transmission Date: 20220721
  Serious: Yes (Hospitalization)
  Sender: FDA-Public Use
  Company Number: GB-MACLEODS PHARMA UK LTD-MAC2022035546

PATIENT

DRUGS (2)
  1. DONEPEZIL [Suspect]
     Active Substance: DONEPEZIL
     Indication: Memory impairment
     Dosage: UNK
     Route: 065
     Dates: start: 20211209
  2. DONEPEZIL [Suspect]
     Active Substance: DONEPEZIL
     Dosage: UNK
     Route: 065
     Dates: start: 202201

REACTIONS (2)
  - Duodenal ulcer [Recovering/Resolving]
  - Gastritis [Unknown]

NARRATIVE: CASE EVENT DATE: 20220215
